FAERS Safety Report 19212233 (Version 2)
Quarter: 2021Q2

REPORT INFORMATION
  Report Type: Spontaneous
  Country: DE (occurrence: DE)
  Receive Date: 20210504
  Receipt Date: 20210524
  Transmission Date: 20210717
  Serious: Yes (Other)
  Sender: FDA-Public Use
  Company Number: DE-TAKEDA-2021TUS027424

PATIENT

DRUGS (1)
  1. HUMAN NORMAL IMMUNOGLOBULIN [Suspect]
     Active Substance: HUMAN IMMUNOGLOBULIN G
     Indication: SEGMENTED HYALINISING VASCULITIS
     Dosage: 2 GRAM PER KILOGRAM, MONTHLY
     Route: 042

REACTIONS (4)
  - Nausea [Unknown]
  - Cardiovascular disorder [Unknown]
  - Dizziness [Unknown]
  - Off label use [Unknown]
